FAERS Safety Report 25543233 (Version 1)
Quarter: 2025Q3

REPORT INFORMATION
  Report Type: Spontaneous
  Country: US (occurrence: US)
  Receive Date: 20250711
  Receipt Date: 20250711
  Transmission Date: 20251020
  Serious: No
  Sender: MERCK SHARP & DOHME LLC
  Company Number: US-009507513-2307971

PATIENT
  Age: 57 Year
  Sex: Female

DRUGS (4)
  1. IMIPENEM [Suspect]
     Active Substance: IMIPENEM
     Indication: Mycobacterial infection
  2. ERAVACYCLINE [Concomitant]
     Active Substance: ERAVACYCLINE
  3. AZITHROMYCIN [Concomitant]
     Active Substance: AZITHROMYCIN
  4. AMIKACIN [Concomitant]
     Active Substance: AMIKACIN

REACTIONS (1)
  - Product use in unapproved indication [Unknown]
